FAERS Safety Report 18007731 (Version 6)
Quarter: 2022Q4

REPORT INFORMATION
  Report Type: Report from Study
  Country: US (occurrence: US)
  Receive Date: 20200710
  Receipt Date: 20221109
  Transmission Date: 20230112
  Serious: Yes (Other)
  Sender: FDA-Public Use
  Company Number: US-CLOVIS ONCOLOGY-CLO-2020-000891

PATIENT
  Sex: Female

DRUGS (7)
  1. RUBRACA [Suspect]
     Active Substance: RUCAPARIB CAMSYLATE
     Indication: Fallopian tube cancer
     Dosage: 600 MG, BID
     Route: 048
     Dates: start: 20191109, end: 20200213
  2. RUBRACA [Suspect]
     Active Substance: RUCAPARIB CAMSYLATE
     Dosage: 500 MG, BID
     Route: 048
     Dates: start: 20200303
  3. RUBRACA [Suspect]
     Active Substance: RUCAPARIB CAMSYLATE
     Dosage: 500 MG, BID
     Route: 048
     Dates: start: 20191107
  4. RUBRACA [Suspect]
     Active Substance: RUCAPARIB CAMSYLATE
     Dosage: 500 MG, BID
     Route: 048
     Dates: start: 20200310, end: 202006
  5. RUBRACA [Suspect]
     Active Substance: RUCAPARIB CAMSYLATE
     Dosage: 500 MG, BID
     Route: 048
     Dates: start: 202006
  6. RUBRACA [Suspect]
     Active Substance: RUCAPARIB CAMSYLATE
     Dosage: 500 MG, BID
     Route: 048
     Dates: start: 20191108
  7. RUBRACA [Suspect]
     Active Substance: RUCAPARIB CAMSYLATE
     Dosage: 500 MG, BID
     Route: 048
     Dates: start: 20200310

REACTIONS (37)
  - Obstruction gastric [Unknown]
  - Oesophagitis [Unknown]
  - Dysphonia [Unknown]
  - Dry skin [Unknown]
  - Alopecia [Recovering/Resolving]
  - Hair growth abnormal [Unknown]
  - Laboratory test abnormal [Unknown]
  - Paraesthesia [Unknown]
  - Pain of skin [Unknown]
  - Ocular hyperaemia [Not Recovered/Not Resolved]
  - Erythema of eyelid [Recovering/Resolving]
  - Sensitive skin [Unknown]
  - Vision blurred [Unknown]
  - Vitreous floaters [Not Recovered/Not Resolved]
  - Nail ridging [Not Recovered/Not Resolved]
  - Nail bed disorder [Unknown]
  - Tremor [Unknown]
  - Blood glucose increased [Unknown]
  - Stress [Unknown]
  - Nervousness [Unknown]
  - Tearfulness [Unknown]
  - Lip pain [Not Recovered/Not Resolved]
  - Hypersensitivity [Unknown]
  - Blister [Recovered/Resolved]
  - Rash [Unknown]
  - Abdominal discomfort [Unknown]
  - Taste disorder [Recovering/Resolving]
  - Photosensitivity reaction [Unknown]
  - Hepatic enzyme increased [Not Recovered/Not Resolved]
  - Alanine aminotransferase increased [Not Recovered/Not Resolved]
  - Aspartate aminotransferase increased [Not Recovered/Not Resolved]
  - Nausea [Unknown]
  - Malaise [Unknown]
  - Fatigue [Unknown]
  - Nausea [Recovered/Resolved]
  - Vomiting [Recovered/Resolved]
  - Product dose omission issue [Unknown]

NARRATIVE: CASE EVENT DATE: 20200101
